FAERS Safety Report 7063690-3 (Version None)
Quarter: 2010Q4

REPORT INFORMATION
  Report Type: 
  Country: None (occurrence: None)
  Receive Date: 20101026
  Receipt Date: 20101013
  Transmission Date: 20110411
  Serious: Yes (Hospitalization)
  Sender: FDA-Public Use
  Company Number: GB-US-EMD SERONO, INC.-7006877

PATIENT
  Sex: Female

DRUGS (1)
  1. REBIF [Suspect]
     Indication: PRODUCT USED FOR UNKNOWN INDICATION
     Dates: start: 20070713, end: 20100606

REACTIONS (6)
  - INJECTION SITE ABSCESS [None]
  - INJECTION SITE SCAR [None]
  - JOINT STIFFNESS [None]
  - JOINT SWELLING [None]
  - NECROTISING FASCIITIS [None]
  - OPEN WOUND [None]
